FAERS Safety Report 9370047 (Version 1)
Quarter: 2013Q2

REPORT INFORMATION
  Report Type: Spontaneous
  Country: KR (occurrence: KR)
  Receive Date: 20130626
  Receipt Date: 20130626
  Transmission Date: 20140414
  Serious: Yes (Hospitalization)
  Sender: FDA-Public Use
  Company Number: KR-PFIZER INC-2013186163

PATIENT
  Age: 42 Year
  Sex: Male

DRUGS (2)
  1. SILDENAFIL CITRATE [Suspect]
     Dosage: 50 MG, UNK
  2. CANNABIS [Suspect]
     Dosage: TWO CANNABIS CIGARETTES

REACTIONS (1)
  - Acute coronary syndrome [Recovered/Resolved]
